FAERS Safety Report 18897253 (Version 1)
Quarter: 2021Q1

REPORT INFORMATION
  Report Type: Spontaneous
  Country: US (occurrence: US)
  Receive Date: 20210213
  Receipt Date: 20210213
  Transmission Date: 20210420
  Serious: Yes (Hospitalization)
  Sender: FDA-Public Use
  Company Number: None

PATIENT
  Age: 79 Year
  Sex: Female
  Weight: 70.5 kg

DRUGS (10)
  1. METOPROLOL. [Concomitant]
     Active Substance: METOPROLOL
     Dates: start: 20210202, end: 20210205
  2. BAMLANIVIMAB. [Suspect]
     Active Substance: BAMLANIVIMAB
     Indication: COVID-19
     Dosage: ?          OTHER FREQUENCY:ONCE;?
     Route: 041
     Dates: start: 20210126, end: 20210126
  3. ALBUTEROL. [Concomitant]
     Active Substance: ALBUTEROL
     Dates: start: 20210202, end: 20210205
  4. AMPICILLIN [Concomitant]
     Active Substance: AMPICILLIN
     Dates: start: 20210202, end: 20210205
  5. PLAVIX [Concomitant]
     Active Substance: CLOPIDOGREL BISULFATE
     Dates: start: 20210203, end: 20210205
  6. ACETAMINOPHEN. [Concomitant]
     Active Substance: ACETAMINOPHEN
     Dates: start: 20210202, end: 20210205
  7. APIXABAN [Concomitant]
     Active Substance: APIXABAN
     Dates: start: 20210203, end: 20210203
  8. LASIX [Concomitant]
     Active Substance: FUROSEMIDE
     Dates: start: 20210202, end: 20210203
  9. HEPARIN [Concomitant]
     Active Substance: HEPARIN SODIUM
     Dates: start: 20210202, end: 20210203
  10. LOVENOX [Concomitant]
     Active Substance: ENOXAPARIN SODIUM
     Dates: start: 20210203, end: 20210203

REACTIONS (14)
  - Dyspnoea [None]
  - Hypertension [None]
  - Tricuspid valve incompetence [None]
  - Diarrhoea [None]
  - Tachypnoea [None]
  - Vomiting [None]
  - Pyrexia [None]
  - Cough [None]
  - Back pain [None]
  - Leukocytosis [None]
  - Pulmonary embolism [None]
  - Mitral valve incompetence [None]
  - Deep vein thrombosis [None]
  - Confusional state [None]

NARRATIVE: CASE EVENT DATE: 20210126
